FAERS Safety Report 5677547-3 (Version None)
Quarter: 2008Q1

REPORT INFORMATION
  Report Type: 
  Country: None (occurrence: None)
  Receive Date: 20080324
  Receipt Date: 20080312
  Transmission Date: 20080703
  Serious: No
  Sender: FDA-Public Use
  Company Number: CH-WYE-G00967908

PATIENT
  Age: 36 Year
  Sex: Male
  Weight: 84 kg

DRUGS (5)
  1. EFFEXOR [Suspect]
     Indication: DEPRESSION
     Dosage: VARIABLE, MAXIMUM 187.5 MG PER DAY
     Route: 065
     Dates: start: 20070417
  2. EFFEXOR [Suspect]
     Indication: PERSONALITY DISORDER
     Route: 048
     Dates: end: 20080115
  3. EFFEXOR [Suspect]
     Dosage: TAPERING OFF
     Route: 048
     Dates: start: 20080115, end: 20080201
  4. TRITTICO [Concomitant]
     Indication: INSOMNIA
     Route: 065
     Dates: start: 20071001
  5. TRITTICO [Concomitant]
     Indication: DEPRESSION

REACTIONS (9)
  - AGITATION [None]
  - DRUG WITHDRAWAL SYNDROME [None]
  - HYPERHIDROSIS [None]
  - PRE-EXISTING CONDITION IMPROVED [None]
  - RASH PUSTULAR [None]
  - SKIN ODOUR ABNORMAL [None]
  - SOMNOLENCE [None]
  - THERAPEUTIC RESPONSE UNEXPECTED [None]
  - TREMOR [None]
